FAERS Safety Report 6765841-4 (Version None)
Quarter: 2010Q2

REPORT INFORMATION
  Report Type: 
  Country: None (occurrence: None)
  Receive Date: 20100611
  Receipt Date: 20100602
  Transmission Date: 20101027
  Serious: Yes (Other)
  Sender: FDA-Public Use
  Company Number: PHHY2010FR36724

PATIENT
  Age: 5 Year
  Sex: Female

DRUGS (1)
  1. RITALIN [Suspect]
     Indication: ATTENTION DEFICIT/HYPERACTIVITY DISORDER
     Dosage: 5 MG IN THE MORNING, 10 MG IN THE EVENING
     Dates: start: 20100522, end: 20100530

REACTIONS (2)
  - ANGIOEDEMA [None]
  - SWELLING FACE [None]
